FAERS Safety Report 5113669-3 (Version None)
Quarter: 2006Q3

REPORT INFORMATION
  Report Type: 
  Country: None (occurrence: None)
  Receive Date: 20060925
  Receipt Date: 20060914
  Transmission Date: 20061208
  Serious: Yes (Disabling)
  Sender: FDA-Public Use
  Company Number: JP-BRISTOL-MYERS SQUIBB COMPANY-13513213

PATIENT
  Age: 3 Decade
  Sex: Female

DRUGS (3)
  1. ENDOXAN [Suspect]
     Indication: OVARIAN EPITHELIAL CANCER
  2. CISPLATIN [Suspect]
     Indication: OVARIAN EPITHELIAL CANCER
  3. ADRIAMYCIN PFS [Suspect]
     Indication: OVARIAN EPITHELIAL CANCER

REACTIONS (1)
  - OVARIAN FAILURE [None]
